FAERS Safety Report 5871159-4 (Version None)
Quarter: 2008Q3

REPORT INFORMATION
  Report Type: 
  Country: None (occurrence: None)
  Receive Date: 20080902
  Receipt Date: 20080818
  Transmission Date: 20090109
  Serious: Yes (Death)
  Sender: FDA-Public Use
  Company Number: 20085518

PATIENT
  Age: 14 Year
  Sex: Male

DRUGS (1)
  1. LIORESAL INTRATHECAL(BACLOFEN INJECTION), 1000.0 MCG/ML [Suspect]
     Indication: MUSCLE SPASTICITY
     Dosage: 184.9 MCG, DAILY, INTRATHECAL
     Route: 037

REACTIONS (1)
  - LEUKODYSTROPHY [None]
